FAERS Safety Report 5767319-3 (Version None)
Quarter: 2008Q2

REPORT INFORMATION
  Report Type: 
  Country: None (occurrence: None)
  Receive Date: 20080606
  Receipt Date: 20080523
  Transmission Date: 20081010
  Serious: Yes (Hospitalization)
  Sender: FDA-Public Use
  Company Number: DSJ-2008-04078

PATIENT
  Age: 57 Year
  Sex: Male
  Weight: 76 kg

DRUGS (6)
  1. OLMESARTAN MEDOXOMIL [Suspect]
     Indication: ESSENTIAL HYPERTENSION
     Dosage: 20 MG (20 MG,1 IN 1 D), PER ORAL
     Route: 048
     Dates: start: 20060217
  2. CALBLOCK (AZELNIDIPINE) (TABLET) (AZELNIDIPINE) [Suspect]
     Indication: ESSENTIAL HYPERTENSION
     Dosage: 16 MG (16 MG,1 IN 1 D), PER ORAL
     Route: 048
     Dates: start: 20060301
  3. BEZATOL (BEZAFIBRATE) (BEZAFIBRATE) [Concomitant]
  4. LIPITOR [Concomitant]
  5. ALLOPURINOL [Suspect]
     Dosage: 200/DAY (2 IN 1 D), PER ORAL
     Route: 048
  6. TRICOR [Suspect]
     Dosage: 135 MG (135 MG, 1 IN1 D), PER ORAL
     Route: 048
     Dates: start: 20060513

REACTIONS (1)
  - ATRIAL FIBRILLATION [None]
